FAERS Safety Report 7408080-6 (Version None)
Quarter: 2011Q2

REPORT INFORMATION
  Report Type: 
  Country: None (occurrence: None)
  Receive Date: 20110412
  Receipt Date: 20110412
  Transmission Date: 20111010
  Serious: Yes (Other)
  Sender: FDA-Public Use
  Company Number: None

PATIENT
  Sex: Female
  Weight: 0.635 kg

DRUGS (1)
  1. POVIDONE IODINE [Suspect]
     Dosage: PICC LINE INSERTED 4/8/1BLISTER/SCAB ROOT IV SITE
     Dates: start: 20110329

REACTIONS (5)
  - PRODUCT QUALITY ISSUE [None]
  - FLAVOBACTERIUM INFECTION [None]
  - PRODUCT CONTAMINATION MICROBIAL [None]
  - ECCHYMOSIS [None]
  - SKIN EXFOLIATION [None]
